FAERS Safety Report 7612768-1 (Version None)
Quarter: 2011Q3

REPORT INFORMATION
  Report Type: 
  Country: None (occurrence: None)
  Receive Date: 20110708
  Receipt Date: 20110630
  Transmission Date: 20111222
  Serious: Yes (Hospitalization, Other)
  Sender: FDA-Public Use
  Company Number: US-2011-10449

PATIENT
  Age: 31 Year
  Sex: Female

DRUGS (5)
  1. CYCLOSPORINE [Concomitant]
  2. BUSULFAN [Suspect]
     Indication: STEM CELL TRANSPLANT
  3. MYCOPHENOLATE (MYCOPHENOLATE MOFEIL) [Concomitant]
  4. CYCLOPHOSPHAMIDE [Suspect]
     Indication: STEM CELL TRANSPLANT
  5. ALEMTUZUMAB (ALEMTUZUMAB) [Concomitant]

REACTIONS (14)
  - NAUSEA [None]
  - DRUG RESISTANCE [None]
  - GRANULOMATOUS LIVER DISEASE [None]
  - IMMUNE RECONSTITUTION SYNDROME [None]
  - HYPOTENSION [None]
  - HEPATIC FUNCTION ABNORMAL [None]
  - ILEUS [None]
  - BLOOD ALKALINE PHOSPHATASE INCREASED [None]
  - BLOOD BILIRUBIN INCREASED [None]
  - VOMITING [None]
  - GRAFT VERSUS HOST DISEASE [None]
  - LOSS OF CONSCIOUSNESS [None]
  - IMMUNOSUPPRESSANT DRUG LEVEL DECREASED [None]
  - TUBERCULOSIS [None]
